FAERS Safety Report 6147092-X (Version None)
Quarter: 2009Q2

REPORT INFORMATION
  Report Type: 
  Country: None (occurrence: None)
  Receive Date: 20090407
  Receipt Date: 20090402
  Transmission Date: 20091009
  Serious: Yes (Death)
  Sender: FDA-Public Use
  Company Number: US-GILEAD-2009-0020619

PATIENT
  Sex: Female

DRUGS (9)
  1. LETAIRIS [Suspect]
     Indication: PULMONARY ARTERIAL HYPERTENSION
     Route: 048
     Dates: start: 20080703
  2. REVATIO [Concomitant]
  3. COUMADIN [Concomitant]
  4. LASIX [Concomitant]
  5. VASOTEC [Concomitant]
  6. CADUET [Concomitant]
  7. SODIUM CHLORIDE [Concomitant]
  8. VITAMIN B-12 [Concomitant]
  9. REPLIVA [Concomitant]

REACTIONS (1)
  - RENAL FAILURE [None]
